FAERS Safety Report 9536580 (Version 1)
Quarter: 2013Q2

REPORT INFORMATION
  Report Type: Spontaneous
  Country: US (occurrence: None)
  Receive Date: 20130517
  Receipt Date: 20130517
  Transmission Date: 20140414
  Serious: No
  Sender: FDA-Public Use
  Company Number: 1000043271

PATIENT
  Age: 62 Year
  Sex: Female

DRUGS (4)
  1. VIIBRYD ( VILAZODONE HYDROCHLORIDE) ( 10 MILLIGRAM, TABLETS) [Suspect]
     Indication: ANXIETY
     Dosage: 10 MG ( 10 MG, 1 IN 1 D), ORAL
     Route: 048
     Dates: start: 20130306
  2. XANAX ( ALPRAZOLAM) (ALPRAZOLAM) [Concomitant]
  3. DIOVAN ( VALSARTAN) ( VALSARTAN) [Concomitant]
  4. SYNTHROID ( LEVOTHYROXINE SODIUM) ( LEVOTHYROXINE SODIUM) [Concomitant]

REACTIONS (3)
  - Diarrhoea [None]
  - Headache [None]
  - Off label use [None]
